FAERS Safety Report 8494289-X (Version None)
Quarter: 2012Q2

REPORT INFORMATION
  Report Type: 
  Country: None (occurrence: None)
  Receive Date: 20120628
  Receipt Date: 20120618
  Transmission Date: 20120825
  Serious: Yes (Hospitalization)
  Sender: FDA-Public Use
  Company Number: 2012SP026327

PATIENT
  Age: 40 Year
  Sex: Male

DRUGS (3)
  1. DEPAKENE [Concomitant]
  2. SYCREST (ASENAPINE /05706901/) [Suspect]
     Indication: BIPOLAR DISORDER
     Dosage: 10 MG,ONCE;SL
     Route: 060
     Dates: start: 20120514, end: 20120514
  3. DELORAZEPAM [Concomitant]

REACTIONS (6)
  - BRADYCARDIA [None]
  - RESTLESSNESS [None]
  - SEDATION [None]
  - HYPOTENSION [None]
  - DYSPNOEA [None]
  - DIZZINESS [None]
